FAERS Safety Report 6715446-6 (Version None)
Quarter: 2010Q2

REPORT INFORMATION
  Report Type: 
  Country: None (occurrence: None)
  Receive Date: 20100507
  Receipt Date: 20100507
  Transmission Date: 20101027
  Serious: Yes (Other)
  Sender: FDA-Public Use
  Company Number: None

PATIENT
  Age: 9 Month
  Sex: Male
  Weight: 4.0824 kg

DRUGS (1)
  1. TYLENOL (INFANT) 80 MG PER 8.0ML [Suspect]
     Dates: start: 20090823, end: 20100505

REACTIONS (2)
  - PRODUCT QUALITY ISSUE [None]
  - VOMITING PROJECTILE [None]
